FAERS Safety Report 7226734-1 (Version None)
Quarter: 2011Q1

REPORT INFORMATION
  Report Type: 
  Country: None (occurrence: None)
  Receive Date: 20110110
  Receipt Date: 20110110
  Transmission Date: 20110831
  Serious: No
  Sender: FDA-Public Use
  Company Number: None

PATIENT
  Sex: Female
  Weight: 104 kg

DRUGS (2)
  1. CARBOPLATIN [Suspect]
     Dosage: 650 MG
     Dates: end: 20101220
  2. ETOPOSIDE [Suspect]
     Dosage: 600 MG
     Dates: end: 20101222

REACTIONS (2)
  - THROMBOCYTOPENIA [None]
  - HAEMOGLOBIN DECREASED [None]
